FAERS Safety Report 25768093 (Version 1)
Quarter: 2025Q3

REPORT INFORMATION
  Report Type: Spontaneous
  Country: US (occurrence: US)
  Receive Date: 20250905
  Receipt Date: 20250905
  Transmission Date: 20251021
  Serious: No
  Sender: DOMPE FARMACEUTICI
  Company Number: US-FARMAPROD-202505-1762

PATIENT
  Sex: Male

DRUGS (12)
  1. OXERVATE [Suspect]
     Active Substance: CENEGERMIN-BKBJ
     Indication: Neurotrophic keratopathy
     Route: 047
     Dates: start: 20250509
  2. TAGRISSO [Concomitant]
     Active Substance: OSIMERTINIB
  3. REMERON [Concomitant]
     Active Substance: MIRTAZAPINE
  4. TOLVAPTAN [Concomitant]
     Active Substance: TOLVAPTAN
  5. LOVENOX [Concomitant]
     Active Substance: ENOXAPARIN SODIUM
  6. METOPROLOL SUCCINATE [Concomitant]
     Active Substance: METOPROLOL SUCCINATE
  7. VITAMIN D-400 [Concomitant]
  8. TIMOLOL [Concomitant]
     Active Substance: TIMOLOL
  9. VALTREX [Concomitant]
     Active Substance: VALACYCLOVIR HYDROCHLORIDE
  10. REFRESH TEARS [Concomitant]
     Active Substance: CARBOXYMETHYLCELLULOSE SODIUM
  11. ROSUVASTATIN CALCIUM [Concomitant]
     Active Substance: ROSUVASTATIN CALCIUM
  12. MIRALAX [Concomitant]
     Active Substance: POLYETHYLENE GLYCOL 3350

REACTIONS (1)
  - Eye infection [Not Recovered/Not Resolved]
